FAERS Safety Report 24279007 (Version 2)
Quarter: 2024Q3

REPORT INFORMATION
  Report Type: Spontaneous
  Country: CN (occurrence: CN)
  Receive Date: 20240903
  Receipt Date: 20240905
  Transmission Date: 20241017
  Serious: Yes (Hospitalization)
  Sender: PFIZER
  Company Number: CN-PFIZER INC-PV202400113448

PATIENT
  Age: 9 Year
  Sex: Male
  Weight: 33 kg

DRUGS (4)
  1. METHOTREXATE SODIUM [Suspect]
     Active Substance: METHOTREXATE SODIUM
     Indication: Acute lymphocytic leukaemia
     Dosage: 5.2 ML, 1X/DAY (WITH 0.9% SODIUM CHLORIDE INJECTION 45 ML)
     Route: 041
     Dates: start: 20240814, end: 20240815
  2. METHOTREXATE SODIUM [Suspect]
     Active Substance: METHOTREXATE SODIUM
     Dosage: 23.900 ML, 2X/DAY (WITH 0.9% SODIUM CHLORIDE INJECTION 226 ML)
     Route: 041
     Dates: start: 20240814, end: 20240815
  3. SODIUM CHLORIDE [Concomitant]
     Active Substance: SODIUM CHLORIDE
     Indication: Vehicle solution use
     Dosage: 45.000 ML, 1X/DAY
     Route: 041
     Dates: start: 20240814, end: 20240815
  4. SODIUM CHLORIDE [Concomitant]
     Active Substance: SODIUM CHLORIDE
     Dosage: 226.000 ML, 2X/DAY
     Route: 041
     Dates: start: 20240814, end: 20240815

REACTIONS (1)
  - Drug level increased [Recovering/Resolving]

NARRATIVE: CASE EVENT DATE: 20240816
